FAERS Safety Report 16448996 (Version 1)
Quarter: 2019Q2

REPORT INFORMATION
  Report Type: Spontaneous
  Country: US (occurrence: US)
  Receive Date: 20190619
  Receipt Date: 20190619
  Transmission Date: 20190711
  Serious: No
  Sender: FDA-Public Use
  Company Number: US-AUROBINDO-AUR-APL-2018-033381

PATIENT
  Age: 5 Year
  Sex: Male

DRUGS (1)
  1. CLINDAMYCIN ORAL SOLUTION [Suspect]
     Active Substance: CLINDAMYCIN
     Indication: PRODUCT USED FOR UNKNOWN INDICATION
     Dosage: 75 MG/3 ML ;3 TIMES DAILY
     Route: 048
     Dates: start: 20180620

REACTIONS (2)
  - No adverse event [Unknown]
  - Product storage error [Not Recovered/Not Resolved]

NARRATIVE: CASE EVENT DATE: 20180620
